FAERS Safety Report 4610956-X (Version None)
Quarter: 2005Q2

REPORT INFORMATION
  Report Type: 
  Country: None (occurrence: None)
  Receive Date: 20050303
  Receipt Date: 20041027
  Transmission Date: 20051028
  Serious: No
  Sender: FDA-Public Use
  Company Number: 702364

PATIENT
  Age: 84 Year
  Sex: Female

DRUGS (2)
  1. AMEVIVE [Suspect]
     Indication: PSORIASIS
     Dosage: QW;IM
     Route: 030
     Dates: start: 20030122, end: 20040316
  2. AMEVIVE [Suspect]
     Indication: PSORIASIS
     Dosage: QW;IM
     Route: 030
     Dates: start: 20040901

REACTIONS (1)
  - CD4 LYMPHOCYTES DECREASED [None]
